FAERS Safety Report 8478886-3 (Version None)
Quarter: 2012Q2

REPORT INFORMATION
  Report Type: 
  Country: None (occurrence: None)
  Receive Date: 20120629
  Receipt Date: 20120626
  Transmission Date: 20120825
  Serious: Yes (Other)
  Sender: FDA-Public Use
  Company Number: US-PFIZER INC-2012132720

PATIENT
  Sex: Female
  Weight: 63 kg

DRUGS (3)
  1. VITAMIN B-12 [Concomitant]
     Indication: MALABSORPTION
     Dosage: 1000 IU, 1XWEEK OR 1XMONTH
  2. PREMARIN [Suspect]
     Indication: HORMONE REPLACEMENT THERAPY
     Dosage: 0.3 MG, 1X/DAY
     Route: 048
     Dates: start: 19720101
  3. PREMARIN [Suspect]
     Indication: HOT FLUSH

REACTIONS (5)
  - FRUSTRATION [None]
  - TREMOR [None]
  - SUICIDAL IDEATION [None]
  - CEREBROVASCULAR ACCIDENT [None]
  - DEPRESSION [None]
